FAERS Safety Report 4387187-4 (Version None)
Quarter: 2004Q2

REPORT INFORMATION
  Report Type: 
  Country: None (occurrence: None)
  Receive Date: 20040630
  Receipt Date: 20040322
  Transmission Date: 20050107
  Serious: No
  Sender: FDA-Public Use
  Company Number: US-GLAXOSMITHKLINE-A0503833A

PATIENT
  Age: 64 Year
  Sex: Female

DRUGS (7)
  1. ADVAIR HFA [Suspect]
     Indication: ASTHMA
     Route: 055
     Dates: start: 20040312
  2. XANAX [Concomitant]
  3. SPIRONOLACTONE [Concomitant]
  4. TRAZODONE HCL [Concomitant]
  5. ALEVE [Concomitant]
  6. ALLERGY MEDICATION [Concomitant]
  7. BENADRYL [Concomitant]

REACTIONS (1)
  - DRUG INEFFECTIVE [None]
